FAERS Safety Report 12872225 (Version 1)
Quarter: 2016Q4

REPORT INFORMATION
  Report Type: Report from Study
  Country: JP (occurrence: JP)
  Receive Date: 20161021
  Receipt Date: 20161021
  Transmission Date: 20170207
  Serious: Yes (Hospitalization)
  Sender: FDA-Public Use
  Company Number: JP-JNJFOC-20161014769

PATIENT
  Age: 58 Year
  Sex: Female

DRUGS (5)
  1. IMBRUVICA [Suspect]
     Active Substance: IBRUTINIB
     Indication: CHRONIC LYMPHOCYTIC LEUKAEMIA
     Route: 048
     Dates: start: 20160616, end: 20160831
  2. BACTRAMIN [Concomitant]
     Active Substance: SULFAMETHOXAZOLE\TRIMETHOPRIM
     Route: 065
  3. CALONAL [Concomitant]
     Active Substance: ACETAMINOPHEN
     Route: 065
  4. IMBRUVICA [Suspect]
     Active Substance: IBRUTINIB
     Indication: CHRONIC LYMPHOCYTIC LEUKAEMIA
     Route: 048
     Dates: start: 20160930
  5. FAMOTIDINE. [Concomitant]
     Active Substance: FAMOTIDINE
     Route: 065

REACTIONS (2)
  - Alopecia [Not Recovered/Not Resolved]
  - Petechiae [Recovered/Resolved]

NARRATIVE: CASE EVENT DATE: 20160701
